FAERS Safety Report 10270311 (Version 3)
Quarter: 2014Q3

REPORT INFORMATION
  Report Type: Spontaneous
  Country: IT (occurrence: None)
  Receive Date: 20140627
  Receipt Date: 20140808
  Transmission Date: 20150326
  Serious: Yes (Hospitalization)
  Sender: FDA-Public Use
  Company Number: AUR-APL-2014-06571

PATIENT
  Age: 38 Year
  Sex: Male

DRUGS (3)
  1. MIRTAZAPINE TABLET 30MG (MIRTAZAPINE) TABLET, 30MG [Suspect]
     Active Substance: MIRTAZAPINE
     Indication: PRODUCT USED FOR UNKNOWN INDICATION
     Dosage: 5 DF, TOTAL, ORAL
     Route: 048
     Dates: start: 20140226, end: 20140226
  2. XANAX [Suspect]
     Active Substance: ALPRAZOLAM
     Indication: PRODUCT USED FOR UNKNOWN INDICATION
     Dosage: 30 DF, TOTAL, ORAL
     Route: 048
     Dates: start: 20140226, end: 20140226
  3. PROMAZINE [Suspect]
     Active Substance: PROMAZINE
     Indication: PRODUCT USED FOR UNKNOWN INDICATION
     Dates: start: 20140228

REACTIONS (3)
  - Drug abuse [None]
  - Intentional self-injury [None]
  - Sopor [None]

NARRATIVE: CASE EVENT DATE: 20140226
